FAERS Safety Report 8893047 (Version 1)
Quarter: 2012Q4

REPORT INFORMATION
  Report Type: 
  Country: US (occurrence: US)
  Receive Date: 20121107
  Receipt Date: 20121107
  Transmission Date: 20130627
  Serious: No
  Sender: FDA-Public Use
  Company Number: US-AMGEN-USASP2011059426

PATIENT
  Age: 44 Year
  Sex: Male

DRUGS (2)
  1. ENBREL [Suspect]
     Indication: PRODUCT USED FOR UNKNOWN INDICATION
     Dosage: 50 mg, UNK
     Dates: start: 20090106, end: 20111017
  2. METHOTREXATE [Concomitant]
     Dosage: 1 mg, qwk
     Dates: start: 2003

REACTIONS (3)
  - Pain [Recovered/Resolved]
  - Inflammation [Not Recovered/Not Resolved]
  - Influenza [Recovered/Resolved]
